FAERS Safety Report 17444859 (Version 1)
Quarter: 2020Q1

REPORT INFORMATION
  Report Type: Report from Study
  Country: None (occurrence: AR)
  Receive Date: 20200221
  Receipt Date: 20200221
  Transmission Date: 20200409
  Serious: Yes (Hospitalization, Other)
  Sender: FDA-Public Use
  Company Number: AR-ABBVIE-19K-007-2768004-00

PATIENT
  Age: 76 Year
  Sex: Female

DRUGS (1)
  1. HUMIRA [Suspect]
     Active Substance: ADALIMUMAB
     Indication: PSORIATIC ARTHROPATHY
     Route: 058
     Dates: start: 20100101

REACTIONS (4)
  - Muscle fatigue [Unknown]
  - Cardio-respiratory arrest [Recovering/Resolving]
  - Femur fracture [Recovering/Resolving]
  - Chondropathy [Unknown]

NARRATIVE: CASE EVENT DATE: 20200109
